FAERS Safety Report 6660286-X (Version None)
Quarter: 2010Q1

REPORT INFORMATION
  Report Type: 
  Country: None (occurrence: None)
  Receive Date: 20100331
  Receipt Date: 20100311
  Transmission Date: 20100710
  Serious: No
  Sender: FDA-Public Use
  Company Number: 2010BI001454

PATIENT
  Age: 42 Year
  Sex: Female

DRUGS (2)
  1. TYSABRI [Suspect]
     Indication: MULTIPLE SCLEROSIS
     Route: 042
     Dates: start: 20071016, end: 20081201
  2. TYSABRI [Suspect]
     Route: 042
     Dates: start: 20091203

REACTIONS (3)
  - ADVERSE DRUG REACTION [None]
  - INFUSION RELATED REACTION [None]
  - URTICARIA [None]
